FAERS Safety Report 9392245 (Version 2)
Quarter: 2013Q3

REPORT INFORMATION
  Report Type: Report from Study
  Country: DE (occurrence: DE)
  Receive Date: 20130710
  Receipt Date: 20130710
  Transmission Date: 20140515
  Serious: Yes (Life-Threatening, Hospitalization)
  Sender: FDA-Public Use
  Company Number: DE-ROCHE-1246604

PATIENT
  Age: 64 Year
  Sex: Female

DRUGS (4)
  1. BEVACIZUMAB [Suspect]
     Indication: COLORECTAL CANCER METASTATIC
     Dosage: MOST RECENT DOSE:4/7/2013, LAST DOSE:5MG/KG
     Route: 042
     Dates: start: 20130704
  2. OXALIPLATIN [Suspect]
     Indication: COLORECTAL CANCER METASTATIC
     Dosage: MOST RECENT DOSE:4/7/2013, LAST DOSE:85MG/KG
     Route: 042
  3. LEUCOVORIN [Suspect]
     Indication: COLORECTAL CANCER METASTATIC
     Dosage: MOST RECENT DOSE:4/7/2013, LAST DOSE:200MG/M2
     Route: 042
  4. FLUOROURACIL [Suspect]
     Indication: COLORECTAL CANCER METASTATIC
     Dosage: MOST RECENT DOSE:4/7/2013, LAST DOSE:3200MG
     Route: 042

REACTIONS (1)
  - Ileus [Unknown]
